FAERS Safety Report 8242049-7 (Version None)
Quarter: 2012Q1

REPORT INFORMATION
  Report Type: 
  Country: None (occurrence: None)
  Receive Date: 20120329
  Receipt Date: 20120321
  Transmission Date: 20120608
  Serious: No
  Sender: FDA-Public Use
  Company Number: US-BIOGENIDEC-2012BI010310

PATIENT
  Age: 61 Year
  Sex: Female

DRUGS (2)
  1. TYSABRI [Suspect]
     Indication: MULTIPLE SCLEROSIS
     Route: 042
     Dates: start: 20071109
  2. AVONEX [Concomitant]
     Indication: MULTIPLE SCLEROSIS
     Route: 030
     Dates: start: 20080801

REACTIONS (10)
  - INSULIN RESISTANCE [None]
  - DEPRESSED MOOD [None]
  - OXYGEN SATURATION DECREASED [None]
  - JOINT ARTHROPLASTY [None]
  - ARTHRITIS [None]
  - PAIN [None]
  - FATIGUE [None]
  - MENISCUS LESION [None]
  - TENDON OPERATION [None]
  - HEADACHE [None]
